FAERS Safety Report 17371149 (Version 3)
Quarter: 2020Q4

REPORT INFORMATION
  Report Type: Report from Study
  Country: US (occurrence: US)
  Receive Date: 20200205
  Receipt Date: 20201216
  Transmission Date: 20210113
  Serious: Yes (Death, Hospitalization)
  Sender: FDA-Public Use
  Company Number: US-BAUSCH-BL-2020-003597

PATIENT
  Age: 55 Year
  Sex: Male

DRUGS (2)
  1. XIFAXAN [Suspect]
     Active Substance: RIFAXIMIN
     Indication: LIVER DISORDER
     Dosage: STARTED SEVERAL YEARS AGO (2015 TO 2018, THE PATIENT ONLY TOOK XIFAXAN SEMI-REGULARLY)
     Route: 048
  2. XIFAXAN [Suspect]
     Active Substance: RIFAXIMIN
     Dosage: BACK ON XIFAXAN IN THE HOSPITAL
     Route: 048

REACTIONS (5)
  - Death [Fatal]
  - Treatment noncompliance [Unknown]
  - Product supply issue [Unknown]
  - Insurance issue [Unknown]
  - Hospitalisation [Recovered/Resolved]

NARRATIVE: CASE EVENT DATE: 2015
